FAERS Safety Report 16144738 (Version 1)
Quarter: 2019Q2

REPORT INFORMATION
  Report Type: Spontaneous
  Country: HR (occurrence: HR)
  Receive Date: 20190402
  Receipt Date: 20190402
  Transmission Date: 20190711
  Serious: Yes (Other)
  Sender: FDA-Public Use
  Company Number: HR-TEVA-2019-HR-1032571

PATIENT
  Age: 31 Year
  Sex: Female

DRUGS (3)
  1. DROSPIRENONE/ETHINYLESTRADIOL [Suspect]
     Active Substance: DROSPIRENONE\ETHINYL ESTRADIOL
     Indication: AUTOIMMUNE DERMATITIS
     Dosage: FORMULATION: PILLS; CONTAINING LOWEST DOSE OF PROGESTERONE
     Route: 048
  2. PREDNISONE. [Suspect]
     Active Substance: PREDNISONE
     Indication: SKIN LESION
     Route: 065
  3. GESTODENE/ETHINYLESTRADIOL BIOGARAN [Suspect]
     Active Substance: ETHINYL ESTRADIOL\GESTODENE
     Indication: CONTRACEPTION
     Dosage: FORMULATION: PILLS
     Route: 048

REACTIONS (2)
  - Autoimmune dermatitis [Unknown]
  - Condition aggravated [Unknown]
